FAERS Safety Report 14352218 (Version 1)
Quarter: 2018Q1

REPORT INFORMATION
  Report Type: Spontaneous
  Country: US (occurrence: US)
  Receive Date: 20180104
  Receipt Date: 20180104
  Transmission Date: 20180509
  Serious: No
  Sender: FDA-Public Use
  Company Number: US-ALLERGAN-1728001US

PATIENT
  Age: 56 Year
  Sex: Female

DRUGS (2)
  1. ACZONE [Suspect]
     Active Substance: DAPSONE
     Dosage: UNK
     Route: 061
  2. ACZONE [Suspect]
     Active Substance: DAPSONE
     Indication: PRODUCT USED FOR UNKNOWN INDICATION
     Dosage: UNK
     Route: 061
     Dates: start: 20170626

REACTIONS (4)
  - Eczema weeping [Unknown]
  - Application site irritation [Unknown]
  - Product storage error [Unknown]
  - Application site erythema [Unknown]

NARRATIVE: CASE EVENT DATE: 20170626
